FAERS Safety Report 12411838 (Version 1)
Quarter: 2016Q2

REPORT INFORMATION
  Report Type: Spontaneous
  Country: US (occurrence: None)
  Receive Date: 20160526
  Receipt Date: 20160526
  Transmission Date: 20160815
  Serious: Yes (Hospitalization)
  Sender: FDA-Public Use
  Company Number: None

PATIENT
  Age: 37 Year
  Sex: Female
  Weight: 70.31 kg

DRUGS (9)
  1. BACLOFEN. [Concomitant]
     Active Substance: BACLOFEN
  2. LAMICTAL [Concomitant]
     Active Substance: LAMOTRIGINE
  3. PRAZOSIN [Concomitant]
     Active Substance: PRAZOSIN
  4. TOPAMAX [Concomitant]
     Active Substance: TOPIRAMATE
  5. TRAZODONE [Concomitant]
     Active Substance: TRAZODONE HYDROCHLORIDE
  6. KLONOPIN CELEXA [Concomitant]
  7. HYDROCODONE [Concomitant]
     Active Substance: HYDROCODONE
  8. CELLCEPT [Concomitant]
     Active Substance: MYCOPHENOLATE MOFETIL\MYCOPHENOLATE MOFETIL HYDROCHLORIDE
  9. VRAYLAR [Suspect]
     Active Substance: CARIPRAZINE
     Indication: BIPOLAR I DISORDER
     Route: 048
     Dates: start: 20160505, end: 20160512

REACTIONS (2)
  - Joint swelling [None]
  - Rhabdomyolysis [None]

NARRATIVE: CASE EVENT DATE: 20160512
